FAERS Safety Report 7961279 (Version 5)
Quarter: 2015Q1

REPORT INFORMATION
  Report Type: Report from Study
  Country: US (occurrence: US)
  Receive Date: 20110526
  Receipt Date: 20150119
  Transmission Date: 20150721
  Serious: Yes (Hospitalization)
  Sender: FDA-Public Use
  Company Number: US-BIOGENIDEC-2011BI018498

PATIENT
  Age: 50 Year
  Sex: Female

DRUGS (3)
  1. AVONEX [Suspect]
     Active Substance: INTERFERON BETA-1A
     Indication: MULTIPLE SCLEROSIS
     Route: 030
     Dates: start: 20060901
  2. AVONEX [Suspect]
     Active Substance: INTERFERON BETA-1A
     Indication: MULTIPLE SCLEROSIS
     Route: 030
     Dates: start: 20121011, end: 20141208
  3. VITAMIN D3 [Concomitant]
     Active Substance: CHOLECALCIFEROL
     Route: 048
     Dates: end: 20141208

REACTIONS (11)
  - Memory impairment [Not Recovered/Not Resolved]
  - Complex partial seizures [Recovered/Resolved]
  - Subdural haematoma [Unknown]
  - Bone operation [Unknown]
  - Haemorrhage intracranial [Unknown]
  - Craniocerebral injury [Recovered/Resolved]
  - Drug hypersensitivity [Recovered/Resolved]
  - Balance disorder [Unknown]
  - Road traffic accident [Recovered/Resolved]
  - Coma [Unknown]
  - Influenza like illness [Unknown]

NARRATIVE: CASE EVENT DATE: 2011
